FAERS Safety Report 5036660-4 (Version None)
Quarter: 2006Q2

REPORT INFORMATION
  Report Type: 
  Country: None (occurrence: None)
  Receive Date: 20060601
  Receipt Date: 20060404
  Transmission Date: 20061013
  Serious: No
  Sender: FDA-Public Use
  Company Number: US200604000808

PATIENT
  Age: 56 Year
  Sex: Female

DRUGS (7)
  1. CYMBALTA [Suspect]
     Indication: DEPRESSION
     Dosage: 30 MG, DAILY (1/D)
     Dates: start: 20060324
  2. FORTEO [Concomitant]
  3. AVANDIA [Concomitant]
  4. KLONOPIN [Concomitant]
  5. EZETIMIBE [Concomitant]
  6. SIMVASTATIN [Concomitant]
  7. COZAAR [Concomitant]

REACTIONS (4)
  - ANXIETY [None]
  - FEELING JITTERY [None]
  - INSOMNIA [None]
  - PANIC ATTACK [None]
